FAERS Safety Report 9179042 (Version 1)
Quarter: 2012Q4

REPORT INFORMATION
  Report Type: 
  Country: US (occurrence: US)
  Receive Date: 20121029
  Receipt Date: 20121029
  Transmission Date: 20130627
  Serious: No
  Sender: FDA-Public Use
  Company Number: US-AMGEN-USASP2012054541

PATIENT
  Age: 82 Year
  Sex: Female
  Weight: 68.03 kg

DRUGS (8)
  1. ENBREL [Suspect]
     Indication: PRODUCT USED FOR UNKNOWN INDICATION
     Dosage: 50 mg, qwk
     Route: 058
  2. GABAPENTIN [Concomitant]
     Dosage: 100 mg, UNK
  3. QUINAPRIL [Concomitant]
     Dosage: 20 mg, UNK
  4. SIMVASTATIN [Concomitant]
     Dosage: 40 mg, UNK
  5. AGGRENOX [Concomitant]
     Dosage: 25-200 mg
  6. MULTIVITAMINS [Concomitant]
  7. VITAMIN D /00107901/ [Concomitant]
     Dosage: 400 Unit, UNK
  8. FISH OIL [Concomitant]

REACTIONS (1)
  - Injection site pain [Unknown]
